FAERS Safety Report 21330220 (Version 3)
Quarter: 2022Q4

REPORT INFORMATION
  Report Type: Spontaneous
  Country: DE (occurrence: DE)
  Receive Date: 20220913
  Receipt Date: 20221011
  Transmission Date: 20230113
  Serious: Yes (Hospitalization, Other)
  Sender: FDA-Public Use
  Company Number: DE-ABBVIE-22K-062-4537488-00

PATIENT
  Sex: Female

DRUGS (3)
  1. PANCRELIPASE [Suspect]
     Active Substance: PANCRELIPASE
     Indication: Hypophagia
     Route: 050
     Dates: start: 2022
  2. PANCRELIPASE [Suspect]
     Active Substance: PANCRELIPASE
     Indication: Hypophagia
     Route: 048
     Dates: start: 2022
  3. VOLTAREN [Suspect]
     Active Substance: DICLOFENAC SODIUM
     Indication: Pain
     Route: 065

REACTIONS (7)
  - Gastric cancer [Unknown]
  - Autoimmune disorder [Not Recovered/Not Resolved]
  - Asthenia [Not Recovered/Not Resolved]
  - Platelet count abnormal [Not Recovered/Not Resolved]
  - Contusion [Unknown]
  - Hypophagia [Recovering/Resolving]
  - Blood potassium abnormal [Unknown]

NARRATIVE: CASE EVENT DATE: 20220101
